FAERS Safety Report 17510850 (Version 4)
Quarter: 2021Q4

REPORT INFORMATION
  Report Type: Spontaneous
  Country: CN (occurrence: CN)
  Receive Date: 20200306
  Receipt Date: 20211104
  Transmission Date: 20220303
  Serious: Yes (Other)
  Sender: FDA-Public Use
  Company Number: CN-JNJFOC-20200236939

PATIENT
  Age: 45 Year
  Sex: Male

DRUGS (3)
  1. INVEGA [Suspect]
     Active Substance: PALIPERIDONE
     Indication: Schizophrenia
     Dosage: 6 MG*7
     Route: 048
  2. INVEGA [Suspect]
     Active Substance: PALIPERIDONE
     Dosage: 3 MG*7
     Route: 048
  3. DIAZEPAM [Concomitant]
     Active Substance: DIAZEPAM
     Dosage: AT NIGHT
     Route: 048

REACTIONS (7)
  - Brain injury [Unknown]
  - Speech disorder [Unknown]
  - Product quality issue [Unknown]
  - Product dose omission issue [Unknown]
  - Feeling abnormal [Unknown]
  - Amnesia [Unknown]
  - Cerebral disorder [Unknown]
